FAERS Safety Report 22038801 (Version 1)
Quarter: 2023Q1

REPORT INFORMATION
  Report Type: Spontaneous
  Country: CH (occurrence: CH)
  Receive Date: 20230227
  Receipt Date: 20230227
  Transmission Date: 20230417
  Serious: Yes (Other)
  Sender: FDA-Public Use
  Company Number: CH-CHEPLA-2023002476

PATIENT
  Age: 33 Year
  Sex: Male

DRUGS (2)
  1. HYDROXYUREA [Suspect]
     Active Substance: HYDROXYUREA
     Indication: Essential thrombocythaemia
  2. PIPOBROMAN [Suspect]
     Active Substance: PIPOBROMAN
     Indication: Essential thrombocythaemia

REACTIONS (1)
  - Acute myeloid leukaemia [Unknown]
